FAERS Safety Report 4701294-5 (Version None)
Quarter: 2005Q2

REPORT INFORMATION
  Report Type: 
  Country: None (occurrence: None)
  Receive Date: 20050628
  Receipt Date: 20050623
  Transmission Date: 20051028
  Serious: Yes (Other)
  Sender: FDA-Public Use
  Company Number: PT-MERCK-0506PRT00006

PATIENT
  Age: 52 Year
  Sex: Female

DRUGS (6)
  1. VYTORIN [Suspect]
     Route: 048
     Dates: start: 20050526, end: 20050528
  2. DILTIAZEM HYDROCHLORIDE [Concomitant]
     Route: 048
  3. FUROSEMIDE [Concomitant]
     Route: 048
  4. TRAZODONE HYDROCHLORIDE [Concomitant]
     Route: 065
  5. FLURAZEPAM [Concomitant]
     Route: 065
  6. ALPRAZOLAM [Concomitant]
     Route: 065

REACTIONS (3)
  - ASTHENIA [None]
  - OEDEMA [None]
  - WEIGHT INCREASED [None]
